FAERS Safety Report 24372540 (Version 1)
Quarter: 2024Q3

REPORT INFORMATION
  Report Type: Report from Study
  Country: CA (occurrence: CA)
  Receive Date: 20240927
  Receipt Date: 20240927
  Transmission Date: 20241017
  Serious: Yes (Other)
  Sender: ABBVIE
  Company Number: CA-ABBVIE-5936920

PATIENT
  Age: 27 Year
  Sex: Male

DRUGS (2)
  1. SKYRIZI [Suspect]
     Active Substance: RISANKIZUMAB-RZAA
     Indication: Crohn^s disease
     Dosage: LAST ADMIN : 2024
     Route: 058
     Dates: start: 20240426
  2. VENOFER [Concomitant]
     Active Substance: IRON SUCROSE
     Indication: Product used for unknown indication

REACTIONS (6)
  - Abdominal abscess [Recovering/Resolving]
  - Perforation [Recovering/Resolving]
  - Generalised oedema [Unknown]
  - Pleural effusion [Unknown]
  - Investigation abnormal [Unknown]
  - Malnutrition [Unknown]

NARRATIVE: CASE EVENT DATE: 20240101
